FAERS Safety Report 15010840 (Version 1)
Quarter: 2018Q2

REPORT INFORMATION
  Report Type: Spontaneous
  Country: US (occurrence: US)
  Receive Date: 20180529
  Receipt Date: 20180529
  Transmission Date: 20180711
  Serious: Yes (Disabling)
  Sender: FDA-Public Use
  Company Number: None

PATIENT
  Age: 68 Year
  Sex: Female
  Weight: 73.35 kg

DRUGS (5)
  1. VITAFUSION OMEGA 3 GUMMY VITES [Concomitant]
  2. OMEPRAZOLE. [Concomitant]
     Active Substance: OMEPRAZOLE
  3. MIRTAZIPINE [Concomitant]
     Active Substance: MIRTAZAPINE
  4. NEULASTA [Suspect]
     Active Substance: PEGFILGRASTIM
     Indication: NEUTROPENIA
     Dosage: ?          QUANTITY:1 DF DOSAGE FORM;?
     Dates: start: 20180523
  5. ALPRAZOLAM. [Concomitant]
     Active Substance: ALPRAZOLAM

REACTIONS (19)
  - Headache [None]
  - Paraesthesia [None]
  - Pain [None]
  - Morbid thoughts [None]
  - Nervous system disorder [None]
  - Hallucination [None]
  - Spinal pain [None]
  - Insomnia [None]
  - Neck pain [None]
  - Toothache [None]
  - Dyskinesia [None]
  - Hyperaesthesia [None]
  - Ear pain [None]
  - Muscle spasms [None]
  - Muscle twitching [None]
  - Posture abnormal [None]
  - Tremor [None]
  - Onychalgia [None]
  - Burning sensation [None]

NARRATIVE: CASE EVENT DATE: 20180525
